FAERS Safety Report 21387602 (Version 1)
Quarter: 2022Q3

REPORT INFORMATION
  Report Type: Spontaneous
  Country: DE (occurrence: DE)
  Receive Date: 20220928
  Receipt Date: 20220928
  Transmission Date: 20221027
  Serious: Yes (Hospitalization)
  Sender: FDA-Public Use
  Company Number: DE-MYLANLABS-2022M1097700

PATIENT
  Age: 80 Year
  Sex: Male

DRUGS (5)
  1. TRANEXAMIC ACID [Suspect]
     Active Substance: TRANEXAMIC ACID
     Indication: Acquired Von Willebrand^s disease
     Dosage: 500 MILLIGRAM, DOSAGE: 500 MG EVERY 8 H INTRAVENOUSLY
     Route: 042
  2. IMMUNE GLOBULIN NOS [Suspect]
     Active Substance: IMMUNE GLOBULIN NOS
     Indication: Acquired Von Willebrand^s disease
     Dosage: UNK, DOSAGE: 1G/KG BODY WEIGHT PER DAY FOR 2 DAYS
     Route: 042
  3. PREDNISOLONE [Suspect]
     Active Substance: PREDNISOLONE
     Indication: Acquired Von Willebrand^s disease
     Dosage: UNK, DOSAGE: 1 MG/KG BODY WEIGHT PER DAY
     Route: 065
  4. RITUXIMAB [Suspect]
     Active Substance: RITUXIMAB
     Indication: Acquired Von Willebrand^s disease
     Dosage: UNK UNK, CYCLE, DOSAGE: RECEIVED 375MG/M2 BODY SURFACE AREA EVERY WEEK FOR 4 CYCLES
     Route: 065
  5. VONICOG ALFA [Concomitant]
     Active Substance: VONICOG ALFA
     Indication: Acquired Von Willebrand^s disease
     Dosage: UNK, DOSAGE: INFUSION OF VONICOG ALFA AT 42 IU/KG
     Route: 065

REACTIONS (1)
  - Drug ineffective [Unknown]
